FAERS Safety Report 24344553 (Version 1)
Quarter: 2024Q3

REPORT INFORMATION
  Report Type: Report from Study
  Country: CA (occurrence: CA)
  Receive Date: 20240920
  Receipt Date: 20240920
  Transmission Date: 20241016
  Serious: Yes (Other)
  Sender: SAMSUNG BIOEPIS
  Company Number: CA-SAMSUNG BIOEPIS-SB-2024-28081

PATIENT
  Age: 68 Year
  Sex: Female

DRUGS (21)
  1. HADLIMA [Suspect]
     Active Substance: ADALIMUMAB-BWWD
     Indication: Crohn^s disease
     Dates: start: 20240610
  2. HYDROXYCHLOROQUINE [Concomitant]
     Active Substance: HYDROXYCHLOROQUINE
     Indication: Product used for unknown indication
  3. GABAPENTIN [Concomitant]
     Active Substance: GABAPENTIN
     Indication: Product used for unknown indication
  4. RABEPRAZOLE [Concomitant]
     Active Substance: RABEPRAZOLE
     Indication: Product used for unknown indication
  5. RISEDRONATE SODIUM [Concomitant]
     Active Substance: RISEDRONATE SODIUM
     Indication: Product used for unknown indication
  6. PENTASA [Concomitant]
     Active Substance: MESALAMINE
     Indication: Product used for unknown indication
  7. WELLBUTRIN XL [Concomitant]
     Active Substance: BUPROPION HYDROCHLORIDE
     Indication: Product used for unknown indication
  8. LEVOTHYROXINE [Concomitant]
     Active Substance: LEVOTHYROXINE\LEVOTHYROXINE SODIUM
     Indication: Product used for unknown indication
  9. RAMIPRIL [Concomitant]
     Active Substance: RAMIPRIL
     Indication: Product used for unknown indication
  10. VITAMIN B12 [Concomitant]
     Active Substance: CYANOCOBALAMIN
     Indication: Product used for unknown indication
  11. Hyalurinic acid [Concomitant]
     Indication: Product used for unknown indication
  12. Diclofenac cream 15-20% [Concomitant]
     Indication: Product used for unknown indication
     Dosage: TID PRN;
  13. GAVISCON [Concomitant]
     Active Substance: ALUMINUM HYDROXIDE\MAGNESIUM CARBONATE
     Indication: Product used for unknown indication
     Dosage: PRN;
  14. CALCIUM CARBONATE [Concomitant]
     Active Substance: CALCIUM CARBONATE
     Indication: Product used for unknown indication
  15. VITAMIN D3 [Concomitant]
     Active Substance: CHOLECALCIFEROL
     Indication: Product used for unknown indication
  16. OMEGA-3 ACIDS [Concomitant]
     Active Substance: OMEGA-3 FATTY ACIDS
     Indication: Product used for unknown indication
  17. Centrum Women^s 50+ [Concomitant]
     Indication: Product used for unknown indication
  18. IRON [Concomitant]
     Active Substance: IRON
     Indication: Product used for unknown indication
  19. ASCORBIC ACID\ZINC [Concomitant]
     Active Substance: ASCORBIC ACID\ZINC
     Indication: Product used for unknown indication
  20. Vitamin B50 [Concomitant]
     Indication: Product used for unknown indication
  21. LUTEIN [Concomitant]
     Active Substance: LUTEIN
     Indication: Product used for unknown indication

REACTIONS (3)
  - Small intestine ulcer [Not Recovered/Not Resolved]
  - Abdominal pain [Not Recovered/Not Resolved]
  - Arthralgia [Not Recovered/Not Resolved]
